FAERS Safety Report 14580388 (Version 1)
Quarter: 2018Q1

REPORT INFORMATION
  Report Type: Spontaneous
  Country: US (occurrence: US)
  Receive Date: 20180228
  Receipt Date: 20180228
  Transmission Date: 20180509
  Serious: No
  Sender: FDA-Public Use
  Company Number: US-GEMINI LABORATORIES, LLC-GEM201705-000005

PATIENT
  Sex: Female

DRUGS (2)
  1. METFORMIN [Suspect]
     Active Substance: METFORMIN HYDROCHLORIDE
  2. REPAGLINIDE. [Suspect]
     Active Substance: REPAGLINIDE

REACTIONS (1)
  - Malaise [Unknown]
